FAERS Safety Report 8844566 (Version 1)
Quarter: 2012Q4

REPORT INFORMATION
  Report Type: Spontaneous
  Country: US (occurrence: None)
  Receive Date: 20121016
  Receipt Date: 20121016
  Transmission Date: 20130627
  Serious: Yes (Hospitalization)
  Sender: FDA-Public Use
  Company Number: None

PATIENT
  Age: 71 Year
  Sex: Male
  Weight: 109 kg

DRUGS (8)
  1. ASA [Suspect]
     Indication: PROPHYLAXIS
     Dosage: 81mg daily po
     Route: 048
  2. IBUPROFEN [Suspect]
     Indication: ARTHRITIC PAINS
     Dosage: 1-2 PRN po
     Route: 048
  3. OMEPRAZOLE [Concomitant]
  4. AMLODIPINE [Concomitant]
  5. ALLOPURINOL [Concomitant]
  6. VIT D3 [Concomitant]
  7. OMEGA -3 [Concomitant]
  8. VIT B [Concomitant]

REACTIONS (3)
  - Syncope [None]
  - Gastrointestinal haemorrhage [None]
  - Gastric mucosa erythema [None]
